FAERS Safety Report 8417136-0 (Version None)
Quarter: 2012Q2

REPORT INFORMATION
  Report Type: 
  Country: None (occurrence: None)
  Receive Date: 20120606
  Receipt Date: 20120529
  Transmission Date: 20120825
  Serious: Yes (Other)
  Sender: FDA-Public Use
  Company Number: US-ACTELION-A-US2011-53353

PATIENT

DRUGS (2)
  1. TRACLEER [Suspect]
     Dosage: 62.5 MG, BID
     Route: 048
     Dates: start: 20101117
  2. TRACLEER [Suspect]
     Indication: PULMONARY ARTERIAL HYPERTENSION
     Dosage: 125 MG, BID
     Route: 048
     Dates: start: 20101117

REACTIONS (7)
  - CHEMOTHERAPY [None]
  - FALL [None]
  - JOINT INJURY [None]
  - DIZZINESS [None]
  - DIZZINESS POSTURAL [None]
  - METASTATIC NEOPLASM [None]
  - HYPOTENSION [None]
